FAERS Safety Report 18159528 (Version 1)
Quarter: 2020Q3

REPORT INFORMATION
  Report Type: Spontaneous
  Country: US (occurrence: US)
  Receive Date: 20200817
  Receipt Date: 20200817
  Transmission Date: 20201103
  Serious: Yes (Other)
  Sender: FDA-Public Use
  Company Number: US-PURDUE-USA-2020-0161406

PATIENT
  Sex: Male

DRUGS (2)
  1. OXYIR [Suspect]
     Active Substance: OXYCODONE HYDROCHLORIDE
     Indication: INJURY
     Dosage: UNK
     Route: 065
     Dates: start: 2003
  2. OXYCONTIN [Suspect]
     Active Substance: OXYCODONE HYDROCHLORIDE
     Indication: INJURY
     Dosage: UNK
     Route: 048
     Dates: start: 2003

REACTIONS (4)
  - Drug dependence [Not Recovered/Not Resolved]
  - Stress [Unknown]
  - Myocardial infarction [Recovered/Resolved]
  - Anxiety [Unknown]
